FAERS Safety Report 8063484-6 (Version None)
Quarter: 2012Q1

REPORT INFORMATION
  Report Type: 
  Country: None (occurrence: None)
  Receive Date: 20120123
  Receipt Date: 20120119
  Transmission Date: 20120608
  Serious: Yes (Life-Threatening)
  Sender: FDA-Public Use
  Company Number: FR-ROXANE LABORATORIES, INC.-2012-RO-00503RO

PATIENT
  Age: 36 Year
  Sex: Female

DRUGS (5)
  1. OLANZAPINE [Suspect]
     Dosage: 1500 MG
  2. DIVALPOREX SODIUM [Suspect]
     Indication: MANIA
     Dosage: 1000 MG
  3. OLANZAPINE [Suspect]
     Dosage: 10 MG
  4. DIVALPOREX SODIUM [Suspect]
     Dosage: 1500 MG
  5. DIAZEPAM [Suspect]
     Indication: AGITATION
     Dosage: 30 MG

REACTIONS (1)
  - TOXIC ENCEPHALOPATHY [None]
